FAERS Safety Report 7400477-3 (Version None)
Quarter: 2011Q1

REPORT INFORMATION
  Report Type: 
  Country: None (occurrence: None)
  Receive Date: 20110329
  Receipt Date: 20110322
  Transmission Date: 20110831
  Serious: Yes (Hospitalization)
  Sender: FDA-Public Use
  Company Number: 1000018595

PATIENT
  Age: 41 Year
  Sex: Female

DRUGS (22)
  1. GARLIC (GARLIC)(GARLIC) [Concomitant]
  2. VITAMIN E (VITAMIN E)(VITAMIN E) [Concomitant]
  3. SAVELLA [Suspect]
     Indication: FIBROMYALGIA
     Dosage: 12.5 MG (12.5 MG,1 IN 1 D), ORAL
     Route: 048
     Dates: start: 20110107, end: 20110108
  4. LASIX [Concomitant]
  5. GLUCAGON (GLUCAGON)(GLUCAGON) [Concomitant]
  6. HUMULIN R (INSULIN HUMAN) (INSULIN HUMAN) [Concomitant]
  7. SOYBEAN(SOYBEAN) (TABLETS) (SOYBEAN) [Concomitant]
  8. OMEPRAZOLE (OMEPRAZOLE) (40 MILLIGRAM) (OMEPRAZOLE) [Concomitant]
  9. BUTALBITAL (BUTALBITAL) (CAPSULES)(BUTALBITAL) [Concomitant]
  10. PHENERGAN (PROMETHAZINE)(PROMETHAZINE) [Concomitant]
  11. TRAMADOL HYDROCHLORIDE [Suspect]
     Indication: FIBROMYALGIA
     Dosage: 200 MG (50 MG,4 IN 1 D), ORAL
     Route: 048
     Dates: start: 20110110
  12. TRAMADOL HYDROCHLORIDE [Suspect]
     Indication: FIBROMYALGIA
     Dosage: 200 MG (50 MG,4 IN 1 D), ORAL
     Route: 048
     Dates: end: 20110108
  13. CALTRATE D(CALCIUM CARBONATE, VITAMIN D)(400 INTERNATIONAL UNITS THOUS [Concomitant]
  14. MULTIVITAMINS (MULTIVITAMINS) (MULTIVITAMINS) [Concomitant]
  15. CARAFATE (SUCRALFATE) (1 GRAM) (SUCRALFATE) [Concomitant]
  16. ALBUTEROL (ALBUTEROL)(90 MICROGRAM, INHALANT) (ALBUTEROL) [Concomitant]
  17. SOMA (CARISOPRODOL) (CARISOPRODOL) [Concomitant]
  18. TOPAMAX (TOPIRAMATE) (TOPIRAMATE) [Concomitant]
  19. LANTUS (INSULIN GLARGINE) (INJECTION)(INSULIN GLARGINE) [Concomitant]
  20. ASPIRIN (ACETYLSALICYLIC ACID) (TABLETS)(ACETYLSALICYLIC ACID) [Concomitant]
  21. ZESTRIL [Concomitant]
  22. POLYETHYLENE GLYCOL (POLYETHYLENE GLYCOL) (POLYETHYLENE GLYCOL) [Concomitant]

REACTIONS (13)
  - MUSCLE TWITCHING [None]
  - SEROTONIN SYNDROME [None]
  - MENTAL STATUS CHANGES [None]
  - AGITATION [None]
  - RHABDOMYOLYSIS [None]
  - HYPOGLYCAEMIA [None]
  - PROTEIN URINE PRESENT [None]
  - DYSKINESIA [None]
  - BLOOD CHLORIDE INCREASED [None]
  - BLOOD POTASSIUM DECREASED [None]
  - DELIRIUM [None]
  - BLOOD GLUCOSE INCREASED [None]
  - WHITE BLOOD CELL COUNT INCREASED [None]
